FAERS Safety Report 14279557 (Version 4)
Quarter: 2018Q2

REPORT INFORMATION
  Report Type: Spontaneous
  Country: US (occurrence: US)
  Receive Date: 20171212
  Receipt Date: 20180425
  Transmission Date: 20180711
  Serious: Yes (Death, Hospitalization, Other)
  Sender: FDA-Public Use
  Company Number: US-009507513-1712USA003366

PATIENT
  Age: 61 Year
  Sex: Female

DRUGS (1)
  1. KEYTRUDA [Suspect]
     Active Substance: PEMBROLIZUMAB
     Indication: BLADDER TRANSITIONAL CELL CARCINOMA
     Dosage: 200 MG EVERY 3 WEEKS, 2 TO 4 CYCLES
     Route: 042

REACTIONS (4)
  - Malignant neoplasm progression [Fatal]
  - Tumour pseudoprogression [Unknown]
  - Adverse event [Unknown]
  - Ascites [Unknown]
